FAERS Safety Report 13951892 (Version 1)
Quarter: 2017Q3

REPORT INFORMATION
  Report Type: Report from Study
  Country: IT (occurrence: IT)
  Receive Date: 20170910
  Receipt Date: 20170910
  Transmission Date: 20171128
  Serious: Yes (Death)
  Sender: FDA-Public Use
  Company Number: IT-TEVA-803707ACC

PATIENT
  Age: 19 Year
  Sex: Male

DRUGS (15)
  1. 6-MERCAPTOPURINE MONOHYDRATE [Concomitant]
     Active Substance: MERCAPTOPURINE
  2. CLOFARABINE. [Concomitant]
     Active Substance: CLOFARABINE
  3. CYTARABINE. [Concomitant]
     Active Substance: CYTARABINE
  4. DASATINIB [Concomitant]
     Active Substance: DASATINIB
  5. MITOXANTRONE [Concomitant]
     Active Substance: MITOXANTRONE HYDROCHLORIDE
  6. PONATINIB [Concomitant]
     Active Substance: PONATINIB
  7. AMBISOME [Suspect]
     Active Substance: AMPHOTERICIN B
     Indication: SYSTEMIC MYCOSIS
  8. ATG [Concomitant]
     Active Substance: LAPINE T-LYMPHOCYTE IMMUNE GLOBULIN
  9. HYDROXYUREA. [Concomitant]
     Active Substance: HYDROXYUREA
  10. CYCLOPHOSPHAMIDE. [Concomitant]
     Active Substance: CYCLOPHOSPHAMIDE
  11. BLINATUMOMAB [Concomitant]
     Active Substance: BLINATUMOMAB
  12. FLUDARABINE [Concomitant]
     Active Substance: FLUDARABINE PHOSPHATE
  13. VORICONAZOLE. [Suspect]
     Active Substance: VORICONAZOLE
     Indication: SYSTEMIC MYCOSIS
  14. BUSULFAN APOTEX [Concomitant]
  15. THIOTEPA. [Concomitant]
     Active Substance: THIOTEPA

REACTIONS (1)
  - Drug ineffective [Fatal]
